FAERS Safety Report 8329830-0 (Version None)
Quarter: 2012Q2

REPORT INFORMATION
  Report Type: 
  Country: None (occurrence: None)
  Receive Date: 20120502
  Receipt Date: 20120417
  Transmission Date: 20120825
  Serious: Yes (Other)
  Sender: FDA-Public Use
  Company Number: US-ENDO PHARMACEUTICALS INC.-OPCR20120322

PATIENT
  Sex: Male

DRUGS (2)
  1. OPANA ER [Suspect]
     Indication: PAIN
     Dosage: UNK
     Route: 048
     Dates: start: 20120101
  2. OPANA ER [Concomitant]
     Dosage: UNK
     Route: 048
     Dates: end: 20120101

REACTIONS (3)
  - CONDITION AGGRAVATED [None]
  - BEDRIDDEN [None]
  - MALAISE [None]
